FAERS Safety Report 5853981-3 (Version None)
Quarter: 2008Q3

REPORT INFORMATION
  Report Type: 
  Country: None (occurrence: None)
  Receive Date: 20080822
  Receipt Date: 20080807
  Transmission Date: 20090109
  Serious: Yes (Other)
  Sender: FDA-Public Use
  Company Number: DE-BAYER-200824105GPV

PATIENT
  Sex: Male

DRUGS (7)
  1. FLUDARABINE [Suspect]
     Indication: STEM CELL TRANSPLANT
     Route: 065
  2. MELPHALAN [Suspect]
     Indication: STEM CELL TRANSPLANT
     Route: 065
  3. THYMOGLOBULIN [Suspect]
     Indication: STEM CELL TRANSPLANT
     Route: 065
  4. CYCLOSPORINE [Suspect]
     Indication: PROPHYLAXIS AGAINST GRAFT VERSUS HOST DISEASE
     Route: 065
  5. MYCOPHENOLATE MOFETIL [Suspect]
     Indication: PROPHYLAXIS AGAINST GRAFT VERSUS HOST DISEASE
     Route: 065
  6. PREDNISONE TAB [Suspect]
     Indication: PROPHYLAXIS AGAINST GRAFT VERSUS HOST DISEASE
     Route: 065
  7. CONVENTIONAL CHEMOTHERAPY [Concomitant]
     Indication: MALIGNANT HISTIOCYTOSIS
     Route: 065

REACTIONS (6)
  - ACUTE RESPIRATORY DISTRESS SYNDROME [None]
  - CYTOMEGALOVIRUS INFECTION [None]
  - GRAFT VERSUS HOST DISEASE [None]
  - HEPATOTOXICITY [None]
  - PNEUMONIA CYTOMEGALOVIRAL [None]
  - VENOOCCLUSIVE LIVER DISEASE [None]
